FAERS Safety Report 9634983 (Version 2)
Quarter: 2013Q4

REPORT INFORMATION
  Report Type: Spontaneous
  Country: US (occurrence: US)
  Receive Date: 20131021
  Receipt Date: 20131021
  Transmission Date: 20140711
  Serious: No
  Sender: FDA-Public Use
  Company Number: US-PURDUE-USA-2013-0101858

PATIENT
  Sex: Female

DRUGS (1)
  1. BUTRANS [Suspect]
     Indication: PAIN
     Dosage: 40 MCG/HR (2 20 MCG/HR PATCHES), UNK
     Route: 062

REACTIONS (5)
  - Condition aggravated [Unknown]
  - Kidney infection [Unknown]
  - Extra dose administered [Unknown]
  - Drug ineffective [Unknown]
  - Product adhesion issue [Unknown]
